FAERS Safety Report 7148332-0 (Version None)
Quarter: 2010Q4

REPORT INFORMATION
  Report Type: 
  Country: None (occurrence: None)
  Receive Date: 20101209
  Receipt Date: 20101202
  Transmission Date: 20110411
  Serious: Yes (Death)
  Sender: FDA-Public Use
  Company Number: US-CELGENEUS-163-21880-10120674

PATIENT
  Sex: Male

DRUGS (21)
  1. REVLIMID [Suspect]
     Indication: MULTIPLE MYELOMA
     Route: 048
     Dates: start: 20100720
  2. LEVAQUIN [Concomitant]
     Route: 048
  3. FLUTICASONE PROPIONATE [Concomitant]
     Route: 065
  4. FUROSEMIDE [Concomitant]
     Route: 048
  5. DIOVAN [Concomitant]
     Route: 048
  6. TERAZOSIN HCL [Concomitant]
     Route: 048
  7. LORAZEPAM [Concomitant]
     Route: 048
  8. SIMVASTATIN [Concomitant]
     Route: 048
  9. METFORMIN [Concomitant]
     Route: 048
  10. GLIMEPIRIDE [Concomitant]
     Route: 048
  11. CARVEDILOL [Concomitant]
     Route: 048
  12. PROCHLORPER [Concomitant]
     Route: 048
  13. DIGOXIN [Concomitant]
     Route: 048
  14. ALBUTEROL [Concomitant]
     Route: 065
  15. DOCUSATE SODIUM [Concomitant]
     Route: 048
  16. KLOR-CON [Concomitant]
     Route: 048
  17. GUAIFEN PSE [Concomitant]
     Dosage: 600-120
     Route: 048
  18. WARFARIN SODIUM [Concomitant]
     Route: 048
  19. OXYCODONE HCL [Concomitant]
     Route: 048
  20. FLUNISOLIDE [Concomitant]
     Route: 065
  21. VITAMIN B-12 [Concomitant]
     Route: 048

REACTIONS (1)
  - DEATH [None]
